FAERS Safety Report 10657888 (Version 1)
Quarter: 2014Q4

REPORT INFORMATION
  Report Type: Spontaneous
  Country: US (occurrence: None)
  Receive Date: 20141205
  Receipt Date: 20141205
  Transmission Date: 20150529
  Serious: No
  Sender: FDA-Public Use
  Company Number: USA-2014103626

PATIENT
  Age: 86 Year
  Sex: Male
  Weight: 72.58 kg

DRUGS (10)
  1. VITAMIN B12 (VITAMIN B NOS) (UNKNOWN) [Concomitant]
  2. ZOLEDRONIC ACID (ZOLEDRONIC ACID) (UNKNOWN) [Concomitant]
  3. LISINOPRIL (LISINOPRIL) (UNKNOWN) [Concomitant]
  4. ACYCLOVIR (ACICLOVIR) (UNKNOWN) [Concomitant]
  5. ALLOPURINOL (ALLOPURINOL) (UNKNOWN) [Concomitant]
  6. ASPIRIN (ACETYLSALICYLIC ACID) (UNKNOWN) [Concomitant]
  7. POMALYST [Suspect]
     Active Substance: POMALIDOMIDE
     Indication: PLASMA CELL MYELOMA
     Dosage: 21 IN 28 D, PO
     Route: 048
     Dates: start: 20140808
  8. CALCIUM CARBONATE (CALCIUM CARBONATE) (UNKNOWN) (CALCIUM CARBONATE) [Concomitant]
     Active Substance: CALCIUM CARBONATE
  9. DEXAMETHASONE (DEXAMETHASONE) (UNKNOWN) [Concomitant]
     Active Substance: DEXAMETHASONE
  10. POMALYST [Suspect]
     Active Substance: POMALIDOMIDE
     Indication: PROSTATE CANCER
     Dosage: 21 IN 28 D, PO
     Route: 048
     Dates: start: 20140808

REACTIONS (1)
  - Laboratory test abnormal [None]

NARRATIVE: CASE EVENT DATE: 2014
